FAERS Safety Report 5503650-4 (Version None)
Quarter: 2007Q4

REPORT INFORMATION
  Report Type: 
  Country: None (occurrence: None)
  Receive Date: 20071101
  Receipt Date: 20071025
  Transmission Date: 20080405
  Serious: Yes (Hospitalization)
  Sender: FDA-Public Use
  Company Number: PHNR2007AU02034

PATIENT
  Age: 87 Year
  Sex: Male

DRUGS (7)
  1. ENALAPRIL MALEATE [Concomitant]
  2. FRUSEMIDE [Concomitant]
  3. ALENDRONATE SODIUM [Concomitant]
     Dosage: 70 MG, QW
  4. ACETAMINOPHEN [Concomitant]
     Dosage: 1 G, TID WHEN NECESSARY
  5. MORPHINE [Concomitant]
     Dosage: 10 MG, Q4H WHEN REQUIRED FOR SEVERE PAIN
     Route: 048
  6. COLOXYL WITH SENNA [Concomitant]
     Dosage: 1 TABLET PRN
  7. DICLOFENAC SODIUM [Suspect]
     Dosage: 50 MG, BID WHEN REQUIRED

REACTIONS (6)
  - COGNITIVE DISORDER [None]
  - CONFUSIONAL STATE [None]
  - CONSTIPATION [None]
  - CREATININE RENAL CLEARANCE DECREASED [None]
  - PAIN [None]
  - RENAL IMPAIRMENT [None]
